FAERS Safety Report 6218099-9 (Version None)
Quarter: 2009Q2

REPORT INFORMATION
  Report Type: 
  Country: None (occurrence: None)
  Receive Date: 20090608
  Receipt Date: 20090528
  Transmission Date: 20091009
  Serious: Yes (Hospitalization)
  Sender: FDA-Public Use
  Company Number: PHHY2009TR20753

PATIENT

DRUGS (1)
  1. ZOMETA [Suspect]
     Indication: PROPHYLAXIS

REACTIONS (4)
  - BONE DISORDER [None]
  - DEBRIDEMENT [None]
  - GINGIVAL PAIN [None]
  - OSTEONECROSIS [None]
